FAERS Safety Report 5269915-9 (Version None)
Quarter: 2007Q1

REPORT INFORMATION
  Report Type: 
  Country: None (occurrence: None)
  Receive Date: 20061218
  Receipt Date: 20060627
  Transmission Date: 20070707
  Serious: Yes (Hospitalization)
  Sender: FDA-Public Use
  Company Number: US200607001270

PATIENT
  Age: 58 Year
  Sex: Male
  Weight: 123.4 kg

DRUGS (2)
  1. HUMALOG [Suspect]
     Indication: DIABETES MELLITUS
     Dosage: 100 U.2/D, SUBCUTANEOUS
     Route: 058
  2. BYETT (EXENATIDE) PEN, DISPOSABLE [Concomitant]

REACTIONS (5)
  - BLOOD GLUCOSE DECREASED [None]
  - HYPOGLYCAEMIA [None]
  - LETHARGY [None]
  - LOSS OF CONSCIOUSNESS [None]
  - VISION BLURRED [None]
